FAERS Safety Report 9630756 (Version 3)
Quarter: 2013Q4

REPORT INFORMATION
  Report Type: Spontaneous
  Country: US (occurrence: US)
  Receive Date: 20131018
  Receipt Date: 20131106
  Transmission Date: 20140711
  Serious: Yes (Other)
  Sender: FDA-Public Use
  Company Number: US-AMGEN-USASP2013072358

PATIENT
  Age: 32 Year
  Sex: Female

DRUGS (5)
  1. ENBREL [Suspect]
     Indication: PSORIATIC ARTHROPATHY
     Dosage: 50 MG, QWK
     Route: 058
     Dates: start: 1998
  2. ENBREL [Suspect]
     Indication: PSORIASIS
  3. HUMIRA [Concomitant]
     Dosage: UNK
     Dates: start: 201006
  4. REMICADE [Concomitant]
     Dosage: UNK
  5. VIOXX [Concomitant]

REACTIONS (4)
  - Prolonged pregnancy [Recovered/Resolved]
  - Vein disorder [Unknown]
  - Amniocentesis abnormal [Recovered/Resolved]
  - Arthropathy [Unknown]
